FAERS Safety Report 9397582 (Version 3)
Quarter: 2013Q3

REPORT INFORMATION
  Report Type: Spontaneous
  Country: FR (occurrence: FR)
  Receive Date: 20130712
  Receipt Date: 20130819
  Transmission Date: 20140515
  Serious: Yes (Hospitalization)
  Sender: FDA-Public Use
  Company Number: FR-JNJFOC-20130703890

PATIENT
  Age: 37 Year
  Sex: Female
  Weight: 61 kg

DRUGS (3)
  1. IXPRIM [Suspect]
     Indication: PAIN
     Route: 048
     Dates: start: 20130416, end: 20130430
  2. ADVIL [Suspect]
     Indication: PAIN
     Dosage: 6-8 DOSES DAILY
     Route: 048
     Dates: start: 20130416, end: 20130430
  3. DOLIPRANE [Suspect]
     Indication: PAIN
     Dosage: 4-6 DOSES PER DAY, 8 DOSES FOR ONE UNSPECIFIED DAY
     Route: 048
     Dates: start: 20130416, end: 20130430

REACTIONS (6)
  - Haematemesis [Recovered/Resolved]
  - Liver injury [Unknown]
  - Vomiting [Recovered/Resolved]
  - Diarrhoea [Recovered/Resolved]
  - Nausea [Recovered/Resolved]
  - Overdose [Unknown]
